FAERS Safety Report 19742174 (Version 2)
Quarter: 2021Q4

REPORT INFORMATION
  Report Type: Spontaneous
  Country: US (occurrence: US)
  Receive Date: 20210825
  Receipt Date: 20211109
  Transmission Date: 20220303
  Serious: No
  Sender: FDA-Public Use
  Company Number: US-GSKCCFUS-CASE-01143776_AE-67296

PATIENT
  Sex: Female

DRUGS (1)
  1. BENLYSTA [Suspect]
     Active Substance: BELIMUMAB
     Indication: Systemic lupus erythematosus
     Dosage: UNK UNK, CYC
     Route: 058
     Dates: start: 202107

REACTIONS (1)
  - Pain [Recovered/Resolved]
